FAERS Safety Report 11306573 (Version 1)
Quarter: 2015Q3

REPORT INFORMATION
  Report Type: Spontaneous
  Country: CA (occurrence: CA)
  Receive Date: 20150723
  Receipt Date: 20150723
  Transmission Date: 20151125
  Serious: Yes (Hospitalization, Other)
  Sender: FDA-Public Use
  Company Number: CA-APOTEX-2015AP010614

PATIENT

DRUGS (2)
  1. APO-QUETIAPINE [Suspect]
     Active Substance: QUETIAPINE
     Dosage: UNK
     Dates: start: 201206
  2. APO-QUETIAPINE [Suspect]
     Active Substance: QUETIAPINE
     Indication: BIPOLAR DISORDER
     Dosage: UNK
     Route: 065
     Dates: start: 2005, end: 2005

REACTIONS (4)
  - Suicidal ideation [Recovered/Resolved]
  - Product substitution issue [Recovered/Resolved]
  - Depression [Unknown]
  - Hospitalisation [Unknown]

NARRATIVE: CASE EVENT DATE: 2005
